FAERS Safety Report 9031004 (Version 2)
Quarter: 2013Q2

REPORT INFORMATION
  Report Type: Spontaneous
  Country: US (occurrence: US)
  Receive Date: 20130123
  Receipt Date: 20130503
  Transmission Date: 20140414
  Serious: Yes (Other)
  Sender: FDA-Public Use
  Company Number: PHHY2013US005734

PATIENT
  Age: 60 Year
  Sex: Female

DRUGS (3)
  1. CLINDAMYCIN [Suspect]
  2. WARFARIN [Concomitant]
     Indication: THROMBOSIS
     Route: 048
  3. DICLOXACILLIN [Concomitant]

REACTIONS (1)
  - Gastric disorder [Unknown]
